FAERS Safety Report 16849382 (Version 4)
Quarter: 2019Q4

REPORT INFORMATION
  Report Type: Spontaneous
  Country: GR (occurrence: GR)
  Receive Date: 20190925
  Receipt Date: 20191101
  Transmission Date: 20200122
  Serious: Yes (Life-Threatening, Hospitalization, Other)
  Sender: FDA-Public Use
  Company Number: GR-ACCORD-155644

PATIENT
  Age: 65 Year
  Sex: Female

DRUGS (2)
  1. BRIVUDINE [Interacting]
     Active Substance: BRIVUDINE
     Indication: HERPES ZOSTER
     Dosage: A TOTAL OF 7 DAYS
  2. CAPECITABINE. [Suspect]
     Active Substance: CAPECITABINE
     Indication: BREAST CANCER
     Dosage: EVERY 12 H FOR 14 DAYS FOLLOWED BY 7 DAYS^ REST, REPEATED EVERY 21 DAYS
     Route: 048

REACTIONS (16)
  - Diarrhoea [Recovered/Resolved]
  - Rash [Recovered/Resolved]
  - Palmar-plantar erythrodysaesthesia syndrome [Recovered/Resolved]
  - Condition aggravated [Recovering/Resolving]
  - Asthenia [Recovered/Resolved]
  - Oesophagitis [Recovered/Resolved]
  - Lower respiratory tract infection [Recovered/Resolved]
  - Klebsiella infection [Recovered/Resolved]
  - Pseudomonas test positive [Recovered/Resolved]
  - Aeromonas infection [Recovered/Resolved]
  - Escherichia infection [Recovered/Resolved]
  - Drug interaction [Unknown]
  - Stomatitis [Recovered/Resolved]
  - Pharyngeal inflammation [Recovered/Resolved]
  - Candida infection [Recovered/Resolved]
  - Pancytopenia [Recovered/Resolved]
